FAERS Safety Report 7379884-3 (Version None)
Quarter: 2011Q1

REPORT INFORMATION
  Report Type: 
  Country: None (occurrence: None)
  Receive Date: 20110329
  Receipt Date: 20110318
  Transmission Date: 20110831
  Serious: Yes (Hospitalization)
  Sender: FDA-Public Use
  Company Number: GB-JNJFOC-20110309881

PATIENT
  Age: 44 Year
  Sex: Male

DRUGS (6)
  1. HALOPERIDOL [Concomitant]
     Route: 065
  2. HALOPERIDOL DECANOATE [Suspect]
     Indication: PRODUCT USED FOR UNKNOWN INDICATION
     Route: 065
  3. DIAZEPAM [Concomitant]
     Route: 065
  4. BIPERIDEN HYDROCHLORIDE TAB [Concomitant]
     Route: 065
  5. AMITRIPTYLINE [Concomitant]
     Route: 065
  6. LEVOMEPROMAZINE [Concomitant]
     Route: 065

REACTIONS (7)
  - DELUSION [None]
  - TREATMENT NONCOMPLIANCE [None]
  - CONFUSIONAL STATE [None]
  - DISTURBANCE IN ATTENTION [None]
  - MEMORY IMPAIRMENT [None]
  - DISORIENTATION [None]
  - ANOSOGNOSIA [None]
